FAERS Safety Report 11977174 (Version 1)
Quarter: 2016Q1

REPORT INFORMATION
  Report Type: Spontaneous
  Country: US (occurrence: None)
  Receive Date: 20160128
  Receipt Date: 20160128
  Transmission Date: 20160526
  Serious: Yes (Other)
  Sender: FDA-Public Use
  Company Number: None

PATIENT
  Age: 9 Year
  Sex: Female

DRUGS (8)
  1. SINGULAIR [Concomitant]
     Active Substance: MONTELUKAST SODIUM
  2. VIT. D [Concomitant]
  3. RANITIDINE [Concomitant]
     Active Substance: RANITIDINE\RANITIDINE HYDROCHLORIDE
  4. METHYLPHENIDATE ER 36MG KREMERS URBAN [Suspect]
     Active Substance: METHYLPHENIDATE
     Indication: ATTENTION DEFICIT/HYPERACTIVITY DISORDER
     Dosage: 1 TABLET IN THE MORNING ONCE DAILY TAKEN BY MOUTH
     Route: 048
     Dates: start: 20150111, end: 20150127
  5. CLARITIN [Concomitant]
     Active Substance: LORATADINE
  6. GUMMY MULTIVITAMIN [Concomitant]
  7. PROBIOTIC [Concomitant]
     Active Substance: PROBIOTICS NOS
  8. LEXAPRO [Concomitant]
     Active Substance: ESCITALOPRAM OXALATE

REACTIONS (6)
  - Product substitution issue [None]
  - Irritability [None]
  - Abnormal behaviour [None]
  - Mania [None]
  - Crying [None]
  - Disturbance in attention [None]

NARRATIVE: CASE EVENT DATE: 20150127
